FAERS Safety Report 5528827-3 (Version None)
Quarter: 2007Q4

REPORT INFORMATION
  Report Type: 
  Country: None (occurrence: None)
  Receive Date: 20071114
  Receipt Date: 20070730
  Transmission Date: 20080405
  Serious: Yes (Hospitalization, Other)
  Sender: FDA-Public Use
  Company Number: US-2007-028265

PATIENT
  Age: 25 Year
  Sex: Female

DRUGS (2)
  1. ULTRAVIST (PHARMACY BULK) [Suspect]
     Indication: COMPUTERISED TOMOGRAM
     Dosage: 100 ML, POWER INJECTOR 2ML/SEC, INTRAVENOUS
     Route: 042
     Dates: start: 20070714, end: 20070714
  2. READI-CAT [Concomitant]

REACTIONS (5)
  - FLUSHING [None]
  - LARYNGEAL DYSPNOEA [None]
  - NAUSEA [None]
  - SWELLING FACE [None]
  - VOMITING [None]
